FAERS Safety Report 5805870-8 (Version None)
Quarter: 2008Q3

REPORT INFORMATION
  Report Type: 
  Country: None (occurrence: None)
  Receive Date: 20080710
  Receipt Date: 20080629
  Transmission Date: 20090109
  Serious: Yes (Other)
  Sender: FDA-Public Use
  Company Number: IL-ROCHE-573435

PATIENT
  Age: 32 Year
  Sex: Female

DRUGS (5)
  1. CELLCEPT [Suspect]
     Route: 048
     Dates: start: 20080320
  2. COUMADIN [Interacting]
     Indication: INTERNATIONAL NORMALISED RATIO ABNORMAL
     Route: 048
     Dates: start: 20050101
  3. MESTINON [Concomitant]
     Indication: MYASTHENIA GRAVIS
     Route: 048
  4. ENOXAPARIN SODIUM [Concomitant]
     Indication: PLASMAPHERESIS
     Dosage: DRUG REPORTED AS CLEXAN/ENOXAPARIN-LOW MOLECULAR WEIGHT HEPARIN
     Route: 030
     Dates: start: 20080601, end: 20080601
  5. CYCLOPHOSPHAMIDE [Concomitant]
     Dates: end: 20080615

REACTIONS (7)
  - ASTHENIA [None]
  - DIARRHOEA [None]
  - DRUG INTERACTION [None]
  - INCREASED VISCOSITY OF BRONCHIAL SECRETION [None]
  - INTERNATIONAL NORMALISED RATIO ABNORMAL [None]
  - TIC [None]
  - TONGUE PARALYSIS [None]
